FAERS Safety Report 5980126-1 (Version None)
Quarter: 2008Q4

REPORT INFORMATION
  Report Type: 
  Country: None (occurrence: None)
  Receive Date: 20081205
  Receipt Date: 20081104
  Transmission Date: 20090506
  Serious: No
  Sender: FDA-Public Use
  Company Number: US-BAYER-200837577NA

PATIENT
  Age: 47 Year
  Sex: Female

DRUGS (1)
  1. CLIMARA [Suspect]
     Indication: MENOPAUSAL SYMPTOMS
     Dosage: AS USED: 0.05 MG
     Route: 062

REACTIONS (5)
  - ACNE [None]
  - DRY SKIN [None]
  - HOT FLUSH [None]
  - MENOPAUSAL SYMPTOMS [None]
  - PRURITUS [None]
